FAERS Safety Report 25315843 (Version 1)
Quarter: 2025Q2

REPORT INFORMATION
  Report Type: Spontaneous
  Country: NL (occurrence: NL)
  Receive Date: 20250515
  Receipt Date: 20250515
  Transmission Date: 20250716
  Serious: Yes (Other)
  Sender: TEVA
  Company Number: NL-TEVA-VS-3330622

PATIENT
  Sex: Female

DRUGS (2)
  1. HYDROXYCHLOROQUINE [Suspect]
     Active Substance: HYDROXYCHLOROQUINE
     Indication: Alopecia
     Route: 065
     Dates: start: 2025
  2. PREDNISONE [Suspect]
     Active Substance: PREDNISONE
     Indication: Dermatitis allergic
     Route: 065
     Dates: start: 202503

REACTIONS (13)
  - Dyspnoea [Recovering/Resolving]
  - Immune system disorder [Unknown]
  - Acne [Unknown]
  - Opportunistic infection [Unknown]
  - Influenza like illness [Unknown]
  - Rash maculo-papular [Unknown]
  - Pruritus [Unknown]
  - Ear infection [Unknown]
  - Off label use [Unknown]
  - Throat tightness [Recovering/Resolving]
  - Pyrexia [Unknown]
  - Mouth swelling [Recovering/Resolving]
  - Swollen tongue [Recovering/Resolving]

NARRATIVE: CASE EVENT DATE: 20250101
